FAERS Safety Report 6028447-0 (Version None)
Quarter: 2009Q1

REPORT INFORMATION
  Report Type: 
  Country: None (occurrence: None)
  Receive Date: 20090106
  Receipt Date: 20081229
  Transmission Date: 20090719
  Serious: Yes (Other)
  Sender: FDA-Public Use
  Company Number: US-ROCHE-605940

PATIENT
  Sex: Female

DRUGS (11)
  1. BONIVA [Suspect]
     Indication: OSTEOPOROSIS
     Dosage: FORM REPORTED AS: INFUSION
     Route: 042
     Dates: start: 20081208
  2. SYNTHROID [Concomitant]
  3. PREMARIN [Concomitant]
  4. DARVOCET [Concomitant]
  5. CELEBREX [Concomitant]
  6. CLONAZEPAM [Concomitant]
  7. ZOCOR [Concomitant]
  8. CYMBALTA [Concomitant]
  9. PERCOCET [Concomitant]
  10. METHOTREXATE [Concomitant]
  11. FOLIC ACID [Concomitant]

REACTIONS (3)
  - PHARYNGEAL OEDEMA [None]
  - THROAT IRRITATION [None]
  - URTICARIA [None]
